FAERS Safety Report 25140014 (Version 1)
Quarter: 2025Q1

REPORT INFORMATION
  Report Type: Spontaneous
  Country: US (occurrence: US)
  Receive Date: 20250331
  Receipt Date: 20250331
  Transmission Date: 20250408
  Serious: No
  Sender: MYLAN
  Company Number: US-MYLANLABS-2025M1025289

PATIENT
  Age: 75 Year
  Sex: Male

DRUGS (4)
  1. TYRVAYA [Suspect]
     Active Substance: VARENICLINE TARTRATE
     Indication: Product used for unknown indication
     Dosage: 0.03 MILLIGRAM, BID (TWICE A DAY)
  2. TYRVAYA [Suspect]
     Active Substance: VARENICLINE TARTRATE
     Dosage: 0.03 MILLIGRAM, BID (TWICE A DAY)
     Route: 065
  3. TYRVAYA [Suspect]
     Active Substance: VARENICLINE TARTRATE
     Dosage: 0.03 MILLIGRAM, BID (TWICE A DAY)
     Route: 065
  4. TYRVAYA [Suspect]
     Active Substance: VARENICLINE TARTRATE
     Dosage: 0.03 MILLIGRAM, BID (TWICE A DAY)

REACTIONS (2)
  - Wrong technique in product usage process [Unknown]
  - Product delivery mechanism issue [Unknown]

NARRATIVE: CASE EVENT DATE: 20250301
